FAERS Safety Report 9108322 (Version 2)
Quarter: 2013Q2

REPORT INFORMATION
  Report Type: Report from Study
  Country: JP (occurrence: JP)
  Receive Date: 20130222
  Receipt Date: 20130528
  Transmission Date: 20140414
  Serious: Yes (Death, Other)
  Sender: FDA-Public Use
  Company Number: JP-009507513-1302JPN008345

PATIENT
  Age: 2 Month
  Sex: Female

DRUGS (17)
  1. DIAZOXIDE CAPSULES 25 MG?MSD? [Suspect]
     Indication: HYPOGLYCAEMIA
     Dosage: 8 MG, TID
     Route: 048
     Dates: start: 20120801, end: 20120803
  2. DIAZOXIDE CAPSULES 25 MG?MSD? [Suspect]
     Dosage: 1.33 MG, TID
     Route: 048
     Dates: start: 20120718, end: 20120720
  3. DIAZOXIDE CAPSULES 25 MG?MSD? [Suspect]
     Dosage: 2.33 MG, TID
     Route: 048
     Dates: start: 20120721, end: 20120726
  4. DIAZOXIDE CAPSULES 25 MG?MSD? [Suspect]
     Dosage: 5 MG, TID
     Route: 048
     Dates: start: 20120727, end: 20120731
  5. LASIX (FUROSEMIDE) [Concomitant]
     Indication: CARDIAC FAILURE
     Dosage: 2.5 MG, QD
     Route: 048
     Dates: start: 20120605, end: 20120619
  6. LASIX (FUROSEMIDE) [Concomitant]
     Dosage: 3.2 MG, QD
     Route: 048
     Dates: start: 20120620, end: 20120625
  7. LASIX (FUROSEMIDE) [Concomitant]
     Dosage: 4 MG, QD
     Route: 048
     Dates: start: 20120626, end: 20120717
  8. LASIX (FUROSEMIDE) [Concomitant]
     Dosage: 4 MG, QD
     Route: 048
     Dates: start: 20120718, end: 20120802
  9. LASIX (FUROSEMIDE) [Concomitant]
     Dosage: 8 MG, QD
     Route: 048
     Dates: start: 20120803, end: 20120812
  10. LASIX (FUROSEMIDE) [Concomitant]
     Dosage: 4 MG, QD
     Route: 048
     Dates: start: 20120814, end: 20120822
  11. ALDACTONE A [Concomitant]
     Indication: CARDIAC FAILURE
     Dosage: 1.2 MG, QD
     Route: 048
     Dates: start: 20120605, end: 20120619
  12. ALDACTONE A [Concomitant]
     Dosage: 1.5 MG, QD
     Route: 048
     Dates: start: 20120620, end: 20120625
  13. ALDACTONE A [Concomitant]
     Dosage: 2 MG, QD
     Route: 048
     Dates: start: 20120626, end: 20120626
  14. ALDACTONE A [Concomitant]
     Dosage: 4 MG, QD
     Route: 048
     Dates: start: 20120627, end: 20120717
  15. ALDACTONE A [Concomitant]
     Dosage: 4 MG, QD
     Route: 048
     Dates: start: 20120718, end: 20120802
  16. ALDACTONE A [Concomitant]
     Dosage: 8 MG, QD
     Route: 048
     Dates: start: 20120803, end: 20120812
  17. ALDACTONE A [Concomitant]
     Dosage: 4 MG, QD
     Route: 048
     Dates: start: 20120814, end: 20120822

REACTIONS (2)
  - Cardiac failure [Recovering/Resolving]
  - Trisomy 13 [Fatal]
